FAERS Safety Report 12104232 (Version 2)
Quarter: 2016Q1

REPORT INFORMATION
  Report Type: Spontaneous
  Country: US (occurrence: US)
  Receive Date: 20160223
  Receipt Date: 20160324
  Transmission Date: 20160526
  Serious: Yes (Other)
  Sender: FDA-Public Use
  Company Number: US-ASTRAZENECA-2016SE16474

PATIENT
  Age: 35 Year
  Sex: Female
  Weight: 57.6 kg

DRUGS (2)
  1. DEPACOTE XL [Concomitant]
     Indication: BRAIN NEOPLASM MALIGNANT
     Route: 048
  2. SYMBICORT [Suspect]
     Active Substance: BUDESONIDE\FORMOTEROL FUMARATE DIHYDRATE
     Indication: ASTHMA
     Dosage: 80/4.5, 2 INHALATION TWICE PER DAY
     Route: 055
     Dates: start: 2009

REACTIONS (3)
  - Exposure during pregnancy [Unknown]
  - Brain neoplasm malignant [Unknown]
  - Product quality issue [Unknown]

NARRATIVE: CASE EVENT DATE: 2015
